FAERS Safety Report 9702258 (Version 1)
Quarter: 2013Q4

REPORT INFORMATION
  Report Type: Spontaneous
  Country: US (occurrence: US)
  Receive Date: 20131121
  Receipt Date: 20131121
  Transmission Date: 20140711
  Serious: No
  Sender: FDA-Public Use
  Company Number: US-BAYER-2013-135939

PATIENT
  Age: 64 Year
  Sex: Female

DRUGS (1)
  1. CLIMARA PRO [Suspect]
     Dosage: 0.045/0.015
     Dates: start: 2003

REACTIONS (2)
  - Product adhesion issue [None]
  - Metrorrhagia [None]
